FAERS Safety Report 8412646-4 (Version None)
Quarter: 2012Q2

REPORT INFORMATION
  Report Type: 
  Country: None (occurrence: None)
  Receive Date: 20120605
  Receipt Date: 20120528
  Transmission Date: 20120825
  Serious: Yes (Hospitalization, Other)
  Sender: FDA-Public Use
  Company Number: GB-B.I. PHARMACEUTICALS,INC./RIDGEFIELD-2012-UK-00716UK

PATIENT
  Age: 87 Year
  Sex: Female
  Weight: 59 kg

DRUGS (19)
  1. ASPIRIN [Concomitant]
     Dates: start: 20120111
  2. AZITHROMYCIN [Concomitant]
     Dates: start: 20120323, end: 20120326
  3. DOXYCYCLINE [Concomitant]
     Dates: start: 20120228, end: 20120306
  4. FLUTICASONE FUROATE [Concomitant]
     Dates: start: 20120120
  5. ISOSORBIDE MONONITRATE [Concomitant]
     Dates: start: 20120112
  6. SPIRIVA [Suspect]
     Dates: start: 20120117
  7. FUROSEMIDE [Concomitant]
     Dates: start: 20120121, end: 20120209
  8. SENNA-MINT WAF [Concomitant]
     Dates: start: 20120420, end: 20120427
  9. SIMVASTATIN [Concomitant]
     Dates: start: 20120112
  10. WARFARIN SODIUM [Concomitant]
     Dates: start: 20120424, end: 20120501
  11. LEVOTHYROXINE SODIUM [Concomitant]
     Dates: start: 20120112
  12. CEPHALEXIN [Concomitant]
     Dates: start: 20120202, end: 20120209
  13. CLARITHROMYCIN [Concomitant]
     Dates: start: 20120306, end: 20120313
  14. POLYETHYLENE GLYCOL [Concomitant]
     Dates: start: 20120420, end: 20120427
  15. SORFRADEX [Concomitant]
     Dates: start: 20120323, end: 20120330
  16. RAMIPRIL [Concomitant]
     Dates: start: 20120111
  17. DIGOXIN [Concomitant]
     Dates: start: 20120111
  18. OMEPRAZOLE [Concomitant]
     Dates: start: 20120116
  19. ALBUTEROL [Concomitant]
     Dates: start: 20120110, end: 20120510

REACTIONS (2)
  - ARRHYTHMIA [None]
  - PALPITATIONS [None]
